FAERS Safety Report 25243362 (Version 2)
Quarter: 2025Q2

REPORT INFORMATION
  Report Type: Spontaneous
  Country: US (occurrence: US)
  Receive Date: 20250428
  Receipt Date: 20250430
  Transmission Date: 20250717
  Serious: No
  Sender: SANDOZ
  Company Number: US-SANDOZ-SDZ2025US019882

PATIENT
  Age: 53 Year
  Sex: Male

DRUGS (1)
  1. HYRIMOZ [Suspect]
     Active Substance: ADALIMUMAB-ADAZ
     Indication: Product used for unknown indication
     Dosage: 40 MG, Q2W
     Route: 058

REACTIONS (4)
  - Hyperthermia [Recovered/Resolved]
  - Malaise [Recovered/Resolved]
  - Product dose omission issue [Unknown]
  - Product use issue [Unknown]

NARRATIVE: CASE EVENT DATE: 20250424
